FAERS Safety Report 25460650 (Version 3)
Quarter: 2025Q3

REPORT INFORMATION
  Report Type: Report from Study
  Country: US (occurrence: US)
  Receive Date: 20250620
  Receipt Date: 20250809
  Transmission Date: 20251021
  Serious: Yes (Hospitalization, Other)
  Sender: ALEXION PHARMACEUTICALS
  Company Number: US-AstraZeneca-CH-00893645A

PATIENT
  Sex: Male
  Weight: 147 kg

DRUGS (1)
  1. DAPAGLIFLOZIN [Suspect]
     Active Substance: DAPAGLIFLOZIN
     Route: 065

REACTIONS (9)
  - Cardiac failure congestive [Unknown]
  - Cerebrovascular accident [Unknown]
  - Heart failure with preserved ejection fraction [Unknown]
  - Acute pulmonary oedema [Unknown]
  - Atrial fibrillation [Unknown]
  - Hypertensive emergency [Unknown]
  - Foot deformity [Unknown]
  - Visual impairment [Unknown]
  - Gout [Unknown]
